FAERS Safety Report 7458652-8 (Version None)
Quarter: 2011Q2

REPORT INFORMATION
  Report Type: 
  Country: None (occurrence: None)
  Receive Date: 20110504
  Receipt Date: 20110421
  Transmission Date: 20111010
  Serious: Yes (Other)
  Sender: FDA-Public Use
  Company Number: US-CELGENEUS-163-21880-10123019

PATIENT
  Sex: Male
  Weight: 69.916 kg

DRUGS (13)
  1. ACETAMINOPHEN AND HYDROCODONE BITARTRATE [Concomitant]
     Dosage: 7.5-750MG
     Route: 048
     Dates: start: 20101013
  2. ANUSOL HC [Concomitant]
     Dosage: 2.5 PERCENT
     Route: 054
     Dates: start: 20090914
  3. ZOMETA [Concomitant]
     Route: 065
     Dates: start: 20110104
  4. ANUSOL HC [Concomitant]
     Dosage: 25 MILLIGRAM
     Route: 054
     Dates: start: 20101012
  5. FENTANYL [Concomitant]
     Dosage: 25MCG/HR
     Route: 062
     Dates: start: 20101214, end: 20110104
  6. REVLIMID [Suspect]
     Dosage: 15 MILLIGRAM
     Route: 048
     Dates: start: 20101130, end: 20101213
  7. DEXAMETHASONE [Concomitant]
     Dosage: 20 MILLIGRAM
     Route: 048
     Dates: start: 20101201
  8. ATENOLOL [Concomitant]
     Dosage: 50 MILLIGRAM
     Route: 048
  9. ASPIRIN [Concomitant]
     Dosage: 81 MILLIGRAM
     Route: 048
  10. CHLORHEXIDINE GLUCONATE [Concomitant]
     Dosage: 10 CC
     Route: 048
     Dates: start: 20090914
  11. HYDROXYZINE HCL [Concomitant]
     Route: 048
     Dates: start: 20101226
  12. XYLOCAINE VISCOUS [Concomitant]
     Dosage: 1 TEASPOON
     Route: 048
  13. FENOFIBRATE [Concomitant]
     Dosage: 160 MILLIGRAM
     Route: 048

REACTIONS (6)
  - MYELOPATHY [None]
  - ARTHRALGIA [None]
  - MYOPATHY [None]
  - OEDEMA PERIPHERAL [None]
  - MUSCULAR WEAKNESS [None]
  - RASH GENERALISED [None]
